FAERS Safety Report 8803789 (Version 3)
Quarter: 2013Q3

REPORT INFORMATION
  Report Type: Spontaneous
  Country: US (occurrence: US)
  Receive Date: 20120924
  Receipt Date: 20130828
  Transmission Date: 20140515
  Serious: Yes (Hospitalization, Other)
  Sender: FDA-Public Use
  Company Number: US-009507513-1209USA005499

PATIENT
  Sex: Female
  Weight: 74.83 kg

DRUGS (4)
  1. FOSAMAX [Suspect]
     Indication: OSTEOPOROSIS
     Dosage: 70 MG, QW
     Route: 048
     Dates: start: 1999, end: 2002
  2. ACTONEL [Suspect]
     Indication: OSTEOPOROSIS
     Dosage: 35 MG, QW
     Route: 048
     Dates: start: 20020417, end: 2011
  3. ASCORBIC ACID [Concomitant]
     Indication: ROUTINE HEALTH MAINTENANCE
     Dosage: 1 DF, QD
  4. CALCIUM (UNSPECIFIED) (+) VITAMIN D (UNSPECIFIED) [Concomitant]
     Indication: ROUTINE HEALTH MAINTENANCE
     Dosage: 2 DF, QD
     Dates: start: 1999

REACTIONS (31)
  - Femur fracture [Unknown]
  - Fall [Unknown]
  - Closed fracture manipulation [Unknown]
  - Spinal laminectomy [Recovering/Resolving]
  - Spinal laminectomy [Recovering/Resolving]
  - Foraminotomy [Recovering/Resolving]
  - Spinal fusion surgery [Recovering/Resolving]
  - Bone graft [Recovering/Resolving]
  - Biopsy bone [Unknown]
  - Fasciectomy [Recovering/Resolving]
  - Fasciectomy [Recovering/Resolving]
  - Device dislocation [Unknown]
  - Medical device removal [Unknown]
  - Impaired healing [Unknown]
  - Exploratory operation [Unknown]
  - Low turnover osteopathy [Unknown]
  - Bone density decreased [Not Recovered/Not Resolved]
  - Gastric disorder [Recovered/Resolved]
  - Fluid retention [Recovered/Resolved]
  - Post procedural complication [Unknown]
  - Blood urine present [Unknown]
  - Lumbar spine flattening [Unknown]
  - Intervertebral disc degeneration [Not Recovered/Not Resolved]
  - Arthropathy [Unknown]
  - Lumbar spinal stenosis [Recovering/Resolving]
  - Sciatica [Recovering/Resolving]
  - Lumbar radiculopathy [Recovering/Resolving]
  - Pain in extremity [Unknown]
  - Back pain [Not Recovered/Not Resolved]
  - Back pain [Not Recovered/Not Resolved]
  - Arthralgia [Unknown]
